FAERS Safety Report 9836642 (Version 1)
Quarter: 2014Q1

REPORT INFORMATION
  Report Type: Spontaneous
  Country: US (occurrence: None)
  Receive Date: 20140116
  Receipt Date: 20140116
  Transmission Date: 20141002
  Serious: Yes (Hospitalization)
  Sender: FDA-Public Use
  Company Number: None

PATIENT
  Age: 81 Year
  Sex: Female

DRUGS (1)
  1. SENSIPAR [Suspect]
     Route: 048
     Dates: start: 20130729, end: 20140114

REACTIONS (4)
  - Chest discomfort [None]
  - Dyspnoea [None]
  - Heart rate increased [None]
  - Heart rate decreased [None]
